FAERS Safety Report 11890696 (Version 1)
Quarter: 2016Q1

REPORT INFORMATION
  Report Type: Spontaneous
  Country: US (occurrence: US)
  Receive Date: 20160105
  Receipt Date: 20160105
  Transmission Date: 20160526
  Serious: No
  Sender: FDA-Public Use
  Company Number: US-009507513-1512USA014039

PATIENT
  Sex: Female

DRUGS (1)
  1. NEXPLANON [Suspect]
     Active Substance: ETONOGESTREL
     Dosage: 1 DF, 1 IMPLANT/3 YEARS;IN HER LEFT ARM
     Route: 059
     Dates: start: 2014

REACTIONS (4)
  - Device kink [Not Recovered/Not Resolved]
  - Implant site fibrosis [Not Recovered/Not Resolved]
  - Keloid scar [Not Recovered/Not Resolved]
  - Product quality issue [Not Recovered/Not Resolved]
